FAERS Safety Report 8246536-7 (Version None)
Quarter: 2012Q1

REPORT INFORMATION
  Report Type: 
  Country: None (occurrence: None)
  Receive Date: 20120330
  Receipt Date: 20120321
  Transmission Date: 20120608
  Serious: Yes (Hospitalization)
  Sender: FDA-Public Use
  Company Number: RU-BRISTOL-MYERS SQUIBB COMPANY-16469843

PATIENT
  Age: 72 Year
  Sex: Female

DRUGS (1)
  1. CEFEPIME [Suspect]
     Route: 030

REACTIONS (1)
  - ERYTHEMA MULTIFORME [None]
